FAERS Safety Report 12609689 (Version 2)
Quarter: 2016Q3

REPORT INFORMATION
  Report Type: Report from Study
  Country: MX (occurrence: MX)
  Receive Date: 20160801
  Receipt Date: 20160804
  Transmission Date: 20161109
  Serious: Yes (Death, Other)
  Sender: FDA-Public Use
  Company Number: PHHY2016MX091292

PATIENT
  Age: 80 Year
  Sex: Female

DRUGS (1)
  1. EXELON PATCH [Suspect]
     Active Substance: RIVASTIGMINE
     Indication: SENILE DEMENTIA
     Dosage: PATCH 10 CM2, QD
     Route: 062
     Dates: start: 20160410, end: 201605

REACTIONS (3)
  - Concomitant disease aggravated [Unknown]
  - Pneumonia [Fatal]
  - Bronchitis [Unknown]

NARRATIVE: CASE EVENT DATE: 20160505
